FAERS Safety Report 8014095-X (Version None)
Quarter: 2011Q4

REPORT INFORMATION
  Report Type: 
  Country: None (occurrence: None)
  Receive Date: 20111229
  Receipt Date: 20111222
  Transmission Date: 20120403
  Serious: Yes (Hospitalization)
  Sender: FDA-Public Use
  Company Number: US-MILLENNIUM PHARMACEUTICALS, INC.-2011-06558

PATIENT
  Age: 59 Year
  Sex: Female
  Weight: 98.8 kg

DRUGS (2)
  1. VELCADE [Suspect]
     Indication: BREAST CANCER
     Dosage: 1.6 MG/M2, CYCLIC
     Route: 042
     Dates: start: 20110705, end: 20111122
  2. FULVESTRANT [Suspect]
     Indication: BREAST CANCER
     Dosage: 500 MG, CYCLIC
     Route: 030
     Dates: start: 20110705, end: 20111108

REACTIONS (2)
  - LUNG INFECTION [None]
  - SINUS TACHYCARDIA [None]
